FAERS Safety Report 25075067 (Version 2)
Quarter: 2025Q3

REPORT INFORMATION
  Report Type: Report from Study
  Country: US (occurrence: US)
  Receive Date: 20250313
  Receipt Date: 20250809
  Transmission Date: 20251021
  Serious: Yes (Other)
  Sender: ALEXION PHARMACEUTICALS
  Company Number: US-AstraZeneca-CH-00822295A

PATIENT
  Age: 70 Year
  Sex: Male
  Weight: 89.4 kg

DRUGS (3)
  1. CAPIVASERTIB [Suspect]
     Active Substance: CAPIVASERTIB
     Indication: Prostate cancer
     Route: 065
  2. OLAPARIB [Concomitant]
     Active Substance: OLAPARIB
  3. CABAZITAXEL [Concomitant]
     Active Substance: CABAZITAXEL
     Dosage: 20 MILLIGRAM/SQ. METER, Q3W
     Dates: start: 20241114

REACTIONS (16)
  - Prostate cancer metastatic [Unknown]
  - Malignant neoplasm progression [Unknown]
  - Prostate cancer [Unknown]
  - Hydronephrosis [Unknown]
  - Metastases to lung [Unknown]
  - Calcification metastatic [Unknown]
  - Retroperitoneal lymphadenopathy [Unknown]
  - Hepatic steatosis [Unknown]
  - Lymphadenopathy [Unknown]
  - Intervertebral disc degeneration [Unknown]
  - Arthritis [Unknown]
  - Osteopenia [Unknown]
  - Pulse abnormal [Unknown]
  - Arthrodesis [Unknown]
  - Off label use [Unknown]
  - Palliative care [Unknown]
